FAERS Safety Report 8358457-X (Version None)
Quarter: 2012Q2

REPORT INFORMATION
  Report Type: 
  Country: None (occurrence: None)
  Receive Date: 20120514
  Receipt Date: 20110824
  Transmission Date: 20120825
  Serious: No
  Sender: FDA-Public Use
  Company Number: US-TEVA-2011004451

PATIENT
  Sex: Female

DRUGS (3)
  1. LEXAPRO [Concomitant]
     Dates: start: 20080101
  2. NUVIGIL [Suspect]
     Indication: HYPERSOMNIA RELATED TO ANOTHER MENTAL CONDITION
     Dosage: 250 MILLIGRAM;
     Route: 048
     Dates: start: 20100801
  3. WELLBUTRIN [Concomitant]
     Dates: start: 20080101

REACTIONS (1)
  - DRUG INEFFECTIVE FOR UNAPPROVED INDICATION [None]
